FAERS Safety Report 10219525 (Version 5)
Quarter: 2014Q4

REPORT INFORMATION
  Report Type: Spontaneous
  Country: US (occurrence: None)
  Receive Date: 20140603
  Receipt Date: 20141224
  Transmission Date: 20150528
  Serious: Yes (Life-Threatening, Hospitalization, Other)
  Sender: FDA-Public Use
  Company Number: ADR-2014-00918

PATIENT
  Age: 16 Year
  Sex: Female

DRUGS (3)
  1. COMPOUNDED BACLOFEN INTRATHECAL [Suspect]
     Active Substance: BACLOFEN
     Indication: MUSCLE SPASTICITY
  2. BUPIVACAINE [Suspect]
     Active Substance: BUPIVACAINE
  3. GABLOFEN [Suspect]
     Active Substance: BACLOFEN
     Indication: MUSCLE SPASTICITY

REACTIONS (18)
  - Feeling abnormal [None]
  - Unresponsive to stimuli [None]
  - Coma [None]
  - Device malfunction [None]
  - Withdrawal syndrome [None]
  - Skin erosion [None]
  - Overdose [None]
  - Wound infection bacterial [None]
  - Implant site infection [None]
  - Hypotonia [None]
  - Agitation [None]
  - Screaming [None]
  - Aspiration [None]
  - Skin disorder [None]
  - Device related infection [None]
  - Abnormal behaviour [None]
  - Acute respiratory distress syndrome [None]
  - Bacterial infection [None]

NARRATIVE: CASE EVENT DATE: 20030317
